FAERS Safety Report 7657186-5 (Version None)
Quarter: 2011Q3

REPORT INFORMATION
  Report Type: 
  Country: None (occurrence: None)
  Receive Date: 20110804
  Receipt Date: 20110728
  Transmission Date: 20111222
  Serious: Yes (Death)
  Sender: FDA-Public Use
  Company Number: ZA-SANOFI-AVENTIS-2011SA044024

PATIENT
  Age: 73 Year
  Sex: Male
  Weight: 96 kg

DRUGS (5)
  1. DIURETICS [Concomitant]
     Route: 065
  2. PERINDOPRIL [Concomitant]
     Route: 065
  3. DIGOXIN [Concomitant]
     Route: 065
  4. DRONEDARONE HCL [Suspect]
     Indication: ATRIAL FIBRILLATION
     Route: 048
     Dates: start: 20110406, end: 20110522
  5. GLICLAZIDE [Concomitant]
     Route: 065

REACTIONS (1)
  - CARDIAC DEATH [None]
